FAERS Safety Report 20156312 (Version 1)
Quarter: 2021Q4

REPORT INFORMATION
  Report Type: Spontaneous
  Country: US (occurrence: None)
  Receive Date: 20211206
  Receipt Date: 20211206
  Transmission Date: 20220303
  Serious: Yes (Disabling)
  Sender: FDA-Public Use
  Company Number: None

PATIENT
  Age: 49 Year
  Sex: Female
  Weight: 53.1 kg

DRUGS (1)
  1. DYSPORT [Suspect]
     Active Substance: ABOBOTULINUMTOXINA
     Indication: Skin wrinkling
     Dosage: OTHER STRENGTH : 1;?OTHER QUANTITY : 1 30 TO 50 UNITA;?OTHER FREQUENCY : EVERY 3 MONTHS;?
     Route: 030
     Dates: start: 20170302, end: 20210302

REACTIONS (4)
  - Influenza like illness [None]
  - Impaired quality of life [None]
  - Malaise [None]
  - Eye disorder [None]

NARRATIVE: CASE EVENT DATE: 20210302
